FAERS Safety Report 10064760 (Version 1)
Quarter: 2014Q2

REPORT INFORMATION
  Report Type: Spontaneous
  Country: JP (occurrence: JP)
  Receive Date: 20140408
  Receipt Date: 20140408
  Transmission Date: 20141212
  Serious: Yes (Other)
  Sender: FDA-Public Use
  Company Number: JP-JNJFOC-20140404315

PATIENT
  Age: 63 Year
  Sex: Male

DRUGS (12)
  1. XARELTO [Suspect]
     Indication: CEREBROVASCULAR ACCIDENT PROPHYLAXIS
     Route: 048
     Dates: start: 20140117, end: 20140218
  2. XARELTO [Suspect]
     Indication: CEREBROVASCULAR ACCIDENT PROPHYLAXIS
     Route: 048
     Dates: start: 20140110, end: 20140116
  3. XARELTO [Suspect]
     Indication: ATRIAL FIBRILLATION
     Route: 048
     Dates: start: 20140117, end: 20140218
  4. XARELTO [Suspect]
     Indication: ATRIAL FIBRILLATION
     Route: 048
     Dates: start: 20140110, end: 20140116
  5. AZILSARTAN [Concomitant]
     Route: 048
  6. MEXITIL [Concomitant]
     Route: 048
  7. PURSENNID [Concomitant]
     Route: 048
  8. SELBEX [Concomitant]
     Route: 048
  9. VASOLAN [Concomitant]
     Route: 048
  10. CIBENOL [Concomitant]
     Route: 048
  11. URSO [Concomitant]
     Route: 048
  12. LOPRESSOR [Concomitant]
     Route: 048

REACTIONS (1)
  - Renal impairment [Recovering/Resolving]
